FAERS Safety Report 25817584 (Version 1)
Quarter: 2025Q3

REPORT INFORMATION
  Report Type: Spontaneous
  Country: CN (occurrence: CN)
  Receive Date: 20250918
  Receipt Date: 20250918
  Transmission Date: 20251021
  Serious: Yes (Life-Threatening, Other)
  Sender: BAYER HEALTHCARE PHARMACEUTICALS INC.
  Company Number: CN-BAYER-2025A123260

PATIENT
  Age: 53 Year
  Sex: Female
  Weight: 53 kg

DRUGS (3)
  1. ULTRAVIST [Suspect]
     Active Substance: IOPROMIDE
     Indication: Computerised tomogram abdomen
     Route: 042
     Dates: start: 20250911, end: 20250911
  2. ULTRAVIST [Suspect]
     Active Substance: IOPROMIDE
     Indication: Cholelithiasis
  3. ULTRAVIST [Suspect]
     Active Substance: IOPROMIDE
     Indication: Biliary colic

REACTIONS (13)
  - Anaphylactic shock [Recovering/Resolving]
  - Loss of consciousness [Recovered/Resolved]
  - Blood pressure immeasurable [Recovered/Resolved]
  - Heart rate decreased [Recovered/Resolved]
  - Hypokalaemia [None]
  - Muscle twitching [None]
  - Dyspnoea [Recovered/Resolved]
  - Tachypnoea [Recovered/Resolved]
  - Oral discharge [None]
  - Blood pressure decreased [Recovered/Resolved]
  - Rash erythematous [Recovered/Resolved]
  - Acidosis [None]
  - Peripheral pulse decreased [None]

NARRATIVE: CASE EVENT DATE: 20250911
